FAERS Safety Report 16854699 (Version 1)
Quarter: 2019Q3

REPORT INFORMATION
  Report Type: Spontaneous
  Country: US (occurrence: US)
  Receive Date: 20190805
  Receipt Date: 20190805
  Transmission Date: 20191005
  Serious: No
  Sender: FDA-Public Use
  Company Number: None

PATIENT
  Age: 65 Year
  Sex: Female

DRUGS (1)
  1. VERZENIO [Suspect]
     Active Substance: ABEMACICLIB
     Indication: BREAST CANCER
     Route: 048
     Dates: start: 201907

REACTIONS (7)
  - Somnolence [None]
  - Diarrhoea [None]
  - Headache [None]
  - Lethargy [None]
  - Hot flush [None]
  - Insomnia [None]
  - Bone pain [None]

NARRATIVE: CASE EVENT DATE: 20190805
